FAERS Safety Report 25046060 (Version 1)
Quarter: 2025Q1

REPORT INFORMATION
  Report Type: Spontaneous
  Country: US (occurrence: None)
  Receive Date: 20250305
  Receipt Date: 20250305
  Transmission Date: 20250409
  Serious: Yes (Death)
  Sender: FDA-CTU
  Company Number: None

PATIENT
  Age: 65 Year
  Sex: Male
  Weight: 115 kg

DRUGS (14)
  1. TAZVERIK [Suspect]
     Active Substance: TAZEMETOSTAT HYDROBROMIDE
     Indication: Acute myeloid leukaemia refractory
     Dosage: 800 MG TWICE A DAY ORAL
     Route: 048
     Dates: start: 20240923, end: 20240929
  2. VYXEOS [Suspect]
     Active Substance: CYTARABINE\DAUNORUBICIN
     Indication: Acute myeloid leukaemia refractory
     Route: 042
     Dates: start: 20240924, end: 20240928
  3. CEFEPIME [Concomitant]
     Active Substance: CEFEPIME HYDROCHLORIDE
     Dates: start: 20241014, end: 20241015
  4. DOXYCYCLINE [Concomitant]
     Active Substance: DOXYCYCLINE
     Dates: start: 20241015, end: 20241022
  5. MEROPENEM [Concomitant]
     Active Substance: MEROPENEM
     Dates: start: 20241015, end: 20241022
  6. VANCOMYCIN [Concomitant]
     Active Substance: VANCOMYCIN
     Dates: start: 20241014, end: 20241015
  7. LEVOFLOXACIN [Concomitant]
     Active Substance: LEVOFLOXACIN
     Dates: start: 20241023, end: 20241029
  8. EPINEPHRINE [Concomitant]
     Active Substance: EPINEPHRINE
     Dates: start: 20241105, end: 20241105
  9. AZITHROMYCIN [Concomitant]
     Active Substance: AZITHROMYCIN
     Dates: start: 20241030, end: 20241101
  10. FUROSEMIDE [Concomitant]
     Active Substance: FUROSEMIDE
     Dates: start: 20241014, end: 20241104
  11. POSACONAZOLE [Concomitant]
     Active Substance: POSACONAZOLE
     Dates: start: 20241014, end: 20241103
  12. VANCOMYCIN [Concomitant]
     Active Substance: VANCOMYCIN
     Dates: start: 20241030, end: 20241031
  13. VORICONAZOLE [Concomitant]
     Active Substance: VORICONAZOLE
     Dates: start: 20241103, end: 20241105
  14. EPOPROSTENOL [Concomitant]
     Active Substance: EPOPROSTENOL
     Dates: start: 20241104, end: 20241105

REACTIONS (8)
  - Febrile neutropenia [None]
  - Haemorrhage [None]
  - Respiratory failure [None]
  - Hypoxia [None]
  - Pneumonia fungal [None]
  - Pulmonary hypertension [None]
  - Diffuse alveolar damage [None]
  - Cardiopulmonary failure [None]

NARRATIVE: CASE EVENT DATE: 20241105
